FAERS Safety Report 15129228 (Version 8)
Quarter: 2020Q4

REPORT INFORMATION
  Report Type: Spontaneous
  Country: US (occurrence: US)
  Receive Date: 20180711
  Receipt Date: 20201125
  Transmission Date: 20210113
  Serious: No
  Sender: FDA-Public Use
  Company Number: US-PFIZER INC-2018057201

PATIENT
  Age: 45 Year
  Sex: Female
  Weight: 54 kg

DRUGS (4)
  1. LYRICA [Suspect]
     Active Substance: PREGABALIN
     Indication: PELVIC PAIN
     Dosage: 150 MG, 2X/DAY (TAKE 1 CAP BY MOUTH 2 TIMES DAILY)
     Route: 048
  2. LYRICA [Suspect]
     Active Substance: PREGABALIN
     Indication: FIBROMYALGIA
     Dosage: UNK
  3. LYRICA [Suspect]
     Active Substance: PREGABALIN
     Indication: ENDOMETRIOSIS
  4. LYRICA [Suspect]
     Active Substance: PREGABALIN
     Indication: DRUG THERAPY
     Dosage: 150 MG, 2X/DAY (TAKE 1 CAP BY MOUTH 2 TIMES DAILY)
     Route: 048

REACTIONS (5)
  - Nausea [Unknown]
  - Dyspnoea [Unknown]
  - Ear infection [Unknown]
  - Withdrawal syndrome [Unknown]
  - Abdominal discomfort [Unknown]
